FAERS Safety Report 7809011-7 (Version None)
Quarter: 2011Q4

REPORT INFORMATION
  Report Type: 
  Country: None (occurrence: None)
  Receive Date: 20111012
  Receipt Date: 20111012
  Transmission Date: 20120403
  Serious: Yes (Other)
  Sender: FDA-Public Use
  Company Number: None

PATIENT
  Sex: Female

DRUGS (1)
  1. RECLAST [Suspect]
     Indication: BONE DENSITY DECREASED
     Dates: start: 20110520, end: 20110520

REACTIONS (3)
  - INSOMNIA [None]
  - GROIN PAIN [None]
  - MUSCULAR WEAKNESS [None]
